FAERS Safety Report 11639468 (Version 1)
Quarter: 2015Q4

REPORT INFORMATION
  Report Type: Report from Study
  Country: US (occurrence: US)
  Receive Date: 20151019
  Receipt Date: 20151019
  Transmission Date: 20160304
  Serious: Yes (Hospitalization)
  Sender: FDA-Public Use
  Company Number: PHEH2013US024008

PATIENT
  Age: 53 Year
  Sex: Female
  Weight: 85.9 kg

DRUGS (7)
  1. OMEPRAZOLE. [Concomitant]
     Active Substance: OMEPRAZOLE
     Dosage: 10 MG, UNK
  2. POTASSIUM [Concomitant]
     Active Substance: POTASSIUM
     Dosage: 75 MG, UNK
  3. DEXAMETHASONE. [Concomitant]
     Active Substance: DEXAMETHASONE
     Dosage: 0.5 MG, UNK
  4. IRON [Concomitant]
     Active Substance: IRON
     Dosage: UNK UKN, UNK
  5. THALOMID [Suspect]
     Active Substance: THALIDOMIDE
     Dosage: 100 UNK, UNK
     Dates: start: 2012
  6. ZOMETA [Suspect]
     Active Substance: ZOLEDRONIC ACID
     Indication: PLASMA CELL MYELOMA
     Dosage: 4 MG/5ML, UNK
  7. THALOMID [Suspect]
     Active Substance: THALIDOMIDE
     Dosage: 150 MG, UNK

REACTIONS (7)
  - Pain in extremity [Unknown]
  - Haemoglobin decreased [Unknown]
  - Weight increased [Not Recovered/Not Resolved]
  - Full blood count decreased [Not Recovered/Not Resolved]
  - Joint swelling [Unknown]
  - Red blood cell count decreased [Unknown]
  - Muscle spasms [Recovered/Resolved]

NARRATIVE: CASE EVENT DATE: 20111209
